FAERS Safety Report 14848460 (Version 1)
Quarter: 2018Q2

REPORT INFORMATION
  Report Type: Spontaneous
  Country: DE (occurrence: DE)
  Receive Date: 20180504
  Receipt Date: 20180504
  Transmission Date: 20180711
  Serious: Yes (Hospitalization)
  Sender: FDA-Public Use
  Company Number: DE-BRISTOL-MYERS SQUIBB COMPANY-BMS-2016-114525

PATIENT
  Sex: Female
  Weight: 62 kg

DRUGS (10)
  1. ELIQUIS [Suspect]
     Active Substance: APIXABAN
     Indication: PRODUCT USED FOR UNKNOWN INDICATION
     Dosage: 2 TAB, PER DAY
     Route: 048
  2. DACEPTON [Suspect]
     Active Substance: APOMORPHINE HYDROCHLORIDE
     Indication: PARKINSON^S DISEASE
     Dosage: 124 MG, PER DAY
     Route: 058
  3. AMLODIPIN                          /00972401/ [Concomitant]
     Active Substance: AMLODIPINE BESYLATE
     Indication: PRODUCT USED FOR UNKNOWN INDICATION
     Dosage: 2 TAB, PER DAY
     Route: 048
  4. OMEP                               /00661201/ [Concomitant]
     Active Substance: OMEPRAZOLE
     Indication: PRODUCT USED FOR UNKNOWN INDICATION
     Dosage: 1 TAB, PER DAY
     Route: 048
  5. MADOPAR DEPOT [Concomitant]
     Active Substance: BENSERAZIDE HYDROCHLORIDE\LEVODOPA
     Indication: PRODUCT USED FOR UNKNOWN INDICATION
     Dosage: 1 TAB, PER DAY
     Route: 048
  6. RAMIPRIL. [Concomitant]
     Active Substance: RAMIPRIL
     Indication: PRODUCT USED FOR UNKNOWN INDICATION
     Dosage: 1 TAB, PER DAY
     Route: 048
  7. MIRTAZAPIN [Concomitant]
     Active Substance: MIRTAZAPINE
     Indication: PRODUCT USED FOR UNKNOWN INDICATION
     Dosage: 1 TAB, PER DAY
     Route: 048
  8. METOPROLOL. [Concomitant]
     Active Substance: METOPROLOL
     Indication: PRODUCT USED FOR UNKNOWN INDICATION
     Dosage: 2 TAB, PER DAY
     Route: 048
  9. L-THYROX [Concomitant]
     Active Substance: LEVOTHYROXINE SODIUM
     Indication: PRODUCT USED FOR UNKNOWN INDICATION
     Dosage: 1 TAB, PER DAY
     Route: 048
  10. SIFROL [Concomitant]
     Active Substance: PRAMIPEXOLE
     Indication: PRODUCT USED FOR UNKNOWN INDICATION
     Dosage: 1 TAB, PER DAY
     Route: 048

REACTIONS (7)
  - Agitation [Not Recovered/Not Resolved]
  - Purulence [Recovered/Resolved]
  - Laceration [Not Recovered/Not Resolved]
  - Fall [Not Recovered/Not Resolved]
  - Injection site nodule [Not Recovered/Not Resolved]
  - Visual impairment [Not Recovered/Not Resolved]
  - Injection site haematoma [Recovered/Resolved]

NARRATIVE: CASE EVENT DATE: 20160916
